FAERS Safety Report 10608160 (Version 4)
Quarter: 2015Q2

REPORT INFORMATION
  Report Type: Report from Study
  Country: DE (occurrence: DE)
  Receive Date: 20141125
  Receipt Date: 20150630
  Transmission Date: 20150821
  Serious: Yes (Life-Threatening)
  Sender: FDA-Public Use
  Company Number: DE-TEVA-482293ISR

PATIENT
  Age: 60 Year
  Sex: Female
  Weight: 77 kg

DRUGS (3)
  1. TREOSULFAN [Suspect]
     Active Substance: TREOSULFAN
     Indication: DRUG THERAPY
     Route: 042
     Dates: start: 20140511, end: 20140511
  2. ATG-FRESENIUS [Suspect]
     Active Substance: LAPINE T-LYMPHOCYTE IMMUNE GLOBULIN
     Indication: DRUG THERAPY
     Route: 042
     Dates: start: 20140511, end: 20140511
  3. FLUDARABINE [Suspect]
     Active Substance: FLUDARABINE PHOSPHATE
     Indication: DRUG THERAPY
     Route: 042
     Dates: start: 20140509, end: 20140511

REACTIONS (3)
  - Left ventricular dysfunction [Recovered/Resolved]
  - Right ventricular dysfunction [Recovered/Resolved]
  - Acute kidney injury [Recovered/Resolved with Sequelae]

NARRATIVE: CASE EVENT DATE: 20140511
